FAERS Safety Report 5055370-0 (Version None)
Quarter: 2006Q3

REPORT INFORMATION
  Report Type: 
  Country: None (occurrence: None)
  Receive Date: 20060718
  Receipt Date: 20060718
  Transmission Date: 20061208
  Serious: Yes (Hospitalization)
  Sender: FDA-Public Use
  Company Number: None

PATIENT
  Age: 79 Year
  Sex: Male

DRUGS (9)
  1. OXYCONTIN [Suspect]
     Indication: PAIN
     Dosage: 80 MG Q8H
     Dates: start: 20000501
  2. HYOSCYAMINE [Concomitant]
  3. TERAZOSIN HCL [Concomitant]
  4. AMIODARONE HCL [Concomitant]
  5. FUROSEMIDE [Concomitant]
  6. GLIPIZIDE [Concomitant]
  7. ISOSORBIDE DINITRATE [Concomitant]
  8. LEVOTHYROXINE SODIUM [Concomitant]
  9. LISINOPRIL [Concomitant]

REACTIONS (3)
  - CONSTIPATION [None]
  - NAUSEA [None]
  - VOMITING [None]
